FAERS Safety Report 20804735 (Version 3)
Quarter: 2022Q2

REPORT INFORMATION
  Report Type: Report from Study
  Country: IT (occurrence: IT)
  Receive Date: 20220509
  Receipt Date: 20220527
  Transmission Date: 20220721
  Serious: Yes (Death, Life-Threatening)
  Sender: FDA-Public Use
  Company Number: IT-PFIZER INC-202200654916

PATIENT
  Age: 54 Year
  Sex: Male

DRUGS (5)
  1. GEMTUZUMAB OZOGAMICIN [Suspect]
     Active Substance: GEMTUZUMAB OZOGAMICIN
     Dosage: 3 MG/M2
     Route: 042
     Dates: start: 20220419, end: 20220419
  2. GEMTUZUMAB OZOGAMICIN [Suspect]
     Active Substance: GEMTUZUMAB OZOGAMICIN
     Dosage: 3 MG/M2
     Route: 042
     Dates: start: 20220422, end: 20220422
  3. GEMTUZUMAB OZOGAMICIN [Suspect]
     Active Substance: GEMTUZUMAB OZOGAMICIN
     Dosage: 3 MG/M2
     Route: 042
     Dates: start: 20220425, end: 20220425
  4. CYTARABINE [Suspect]
     Active Substance: CYTARABINE
     Dosage: 200 MG/M2
     Route: 042
     Dates: start: 20220419, end: 20220425
  5. DAUNORUBICIN HYDROCHLORIDE [Suspect]
     Active Substance: DAUNORUBICIN HYDROCHLORIDE
     Dosage: 60 MG/M2
     Route: 042
     Dates: start: 20220419, end: 20220421

REACTIONS (1)
  - Enterocolitis [Fatal]

NARRATIVE: CASE EVENT DATE: 20220428
